FAERS Safety Report 14915939 (Version 1)
Quarter: 2018Q2

REPORT INFORMATION
  Report Type: Spontaneous
  Country: US (occurrence: US)
  Receive Date: 20180518
  Receipt Date: 20180518
  Transmission Date: 20180711
  Serious: Yes (Other)
  Sender: FDA-Public Use
  Company Number: US-JNJFOC-20180510255

PATIENT
  Sex: Female
  Weight: 68.04 kg

DRUGS (1)
  1. LISTERINE COOL MINT ANTISEPTIC [Suspect]
     Active Substance: EUCALYPTOL\MENTHOL\METHYL SALICYLATE\THYMOL
     Indication: DENTAL DISORDER PROPHYLAXIS
     Dosage: MORE THAN FIFTY YEARS
     Route: 048

REACTIONS (3)
  - Wrong technique in product usage process [Unknown]
  - Tongue neoplasm malignant stage unspecified [Recovering/Resolving]
  - Hyperkeratosis [Recovering/Resolving]
